FAERS Safety Report 6236728-0 (Version None)
Quarter: 2009Q2

REPORT INFORMATION
  Report Type: 
  Country: None (occurrence: None)
  Receive Date: 20090619
  Receipt Date: 20090610
  Transmission Date: 20091009
  Serious: Yes (Other)
  Sender: FDA-Public Use
  Company Number: RU-JNJFOC-20090603576

PATIENT
  Age: 37 Year
  Sex: Female

DRUGS (8)
  1. PALIPERIDONE [Suspect]
     Indication: SCHIZOPHRENIA
     Route: 048
  2. PHENAZEPAM [Concomitant]
     Indication: DRUG USE FOR UNKNOWN INDICATION
     Route: 042
  3. AMITRIPTYLINE [Concomitant]
     Indication: DRUG USE FOR UNKNOWN INDICATION
     Route: 042
  4. DIAZEPAM [Concomitant]
     Indication: DRUG USE FOR UNKNOWN INDICATION
  5. GEMODES [Concomitant]
     Indication: DRUG USE FOR UNKNOWN INDICATION
  6. TRIHEXYPHENIDYL [Concomitant]
     Indication: DRUG USE FOR UNKNOWN INDICATION
  7. RISPERIDONE [Concomitant]
  8. HALOPERIDOL [Concomitant]

REACTIONS (3)
  - RESTLESSNESS [None]
  - SOMNOLENCE [None]
  - TREMOR [None]
